FAERS Safety Report 14689952 (Version 2)
Quarter: 2018Q2

REPORT INFORMATION
  Report Type: Spontaneous
  Country: US (occurrence: US)
  Receive Date: 20180328
  Receipt Date: 20180507
  Transmission Date: 20180711
  Serious: Yes (Other)
  Sender: FDA-Public Use
  Company Number: US-ENDO PHARMACEUTICALS INC-2018-025855

PATIENT
  Age: 54 Year
  Sex: Male
  Weight: 70.3 kg

DRUGS (2)
  1. XIAFLEX [Suspect]
     Active Substance: COLLAGENASE CLOSTRIDIUM HISTOLYTICUM
     Dosage: UNK, CYCLE 1 INJECTION 2
     Route: 026
     Dates: start: 20180215, end: 20180215
  2. XIAFLEX [Suspect]
     Active Substance: COLLAGENASE CLOSTRIDIUM HISTOLYTICUM
     Indication: PEYRONIE^S DISEASE
     Dosage: CYCLE 1 INJECTION 1
     Route: 026
     Dates: start: 20180213

REACTIONS (5)
  - Penile contusion [Recovered/Resolved]
  - Urticaria [Recovered/Resolved]
  - Oral mucosal blistering [Recovered/Resolved]
  - Unevaluable event [Recovered/Resolved]
  - Penile swelling [Recovered/Resolved]

NARRATIVE: CASE EVENT DATE: 20180213
